FAERS Safety Report 9386402 (Version 1)
Quarter: 2013Q3

REPORT INFORMATION
  Report Type: Report from Study
  Country: RU (occurrence: RU)
  Receive Date: 20130708
  Receipt Date: 20130708
  Transmission Date: 20140515
  Serious: Yes (Other)
  Sender: FDA-Public Use
  Company Number: RU-ROCHE-1237564

PATIENT
  Sex: 0

DRUGS (4)
  1. TOCILIZUMAB [Suspect]
     Indication: JUVENILE IDIOPATHIC ARTHRITIS
     Dosage: 1-2MONTHS
     Route: 042
  2. TOCILIZUMAB [Suspect]
     Route: 042
  3. METHOTREXATE [Concomitant]
     Route: 065
  4. CYCLOSPORIN [Concomitant]

REACTIONS (11)
  - Cellulitis [Recovered/Resolved]
  - Pneumonia [Recovered/Resolved]
  - Anaphylactic reaction [Unknown]
  - Crohn^s disease [Unknown]
  - Neutropenia [Recovered/Resolved]
  - Transaminases increased [Recovered/Resolved]
  - Herpes virus infection [Unknown]
  - Upper respiratory tract infection [Unknown]
  - Nasopharyngitis [Unknown]
  - Gastroenteritis [Unknown]
  - Drug ineffective [Unknown]
